FAERS Safety Report 16961188 (Version 3)
Quarter: 2019Q4

REPORT INFORMATION
  Report Type: Spontaneous
  Country: US (occurrence: US)
  Receive Date: 20191025
  Receipt Date: 20191127
  Transmission Date: 20200122
  Serious: Yes (Death, Hospitalization, Other)
  Sender: FDA-Public Use
  Company Number: US-SAOL THERAPEUTICS-2019SAO00410

PATIENT
  Age: 34 Year
  Sex: Female

DRUGS (4)
  1. LIORESAL [Suspect]
     Active Substance: BACLOFEN
     Indication: MULTIPLE SCLEROSIS
     Dosage: UNK ?G, \DAY
     Route: 037
     Dates: start: 20191001, end: 201910
  2. LIORESAL [Suspect]
     Active Substance: BACLOFEN
     Dosage: PUMP DECREASED TO MINIMUM RATE THEN STOPPED
     Route: 037
     Dates: start: 201910, end: 20191011
  3. LIORESAL [Suspect]
     Active Substance: BACLOFEN
     Indication: MUSCLE SPASTICITY
     Dosage: 33 ?G, \DAY
     Route: 037
  4. LIORESAL [Suspect]
     Active Substance: BACLOFEN
     Dosage: UNK

REACTIONS (7)
  - Lethargy [Unknown]
  - Death [Fatal]
  - Inflammation [Unknown]
  - Cardiac arrest [Unknown]
  - Renal failure [Unknown]
  - Mental status changes [Unknown]
  - Cerebrospinal fluid leakage [Unknown]

NARRATIVE: CASE EVENT DATE: 201910
